FAERS Safety Report 9988574 (Version 1)
Quarter: 2014Q1

REPORT INFORMATION
  Report Type: Spontaneous
  Country: JP (occurrence: JP)
  Receive Date: 20140310
  Receipt Date: 20140310
  Transmission Date: 20141002
  Serious: Yes (Other)
  Sender: FDA-Public Use
  Company Number: JP-ROCHE-1362246

PATIENT
  Age: 33 Year
  Sex: Male

DRUGS (1)
  1. ALTEPLASE [Suspect]
     Indication: CEREBRAL ISCHAEMIA
     Dosage: ONCE
     Route: 042

REACTIONS (2)
  - Neurological decompensation [Recovered/Resolved]
  - Hemiplegia [Recovered/Resolved]
